FAERS Safety Report 20108475 (Version 1)
Quarter: 2021Q4

REPORT INFORMATION
  Report Type: Spontaneous
  Country: US (occurrence: US)
  Receive Date: 20211124
  Receipt Date: 20211124
  Transmission Date: 20220303
  Serious: No
  Sender: FDA-Public Use
  Company Number: US-PERRIGO-21US010978

PATIENT
  Age: 70 Year
  Sex: Female
  Weight: 65.76 kg

DRUGS (4)
  1. POLYETHYLENE GLYCOL 3350 [Suspect]
     Active Substance: POLYETHYLENE GLYCOL 3350
     Indication: Constipation
     Dosage: 25.5 G, BID
     Route: 048
     Dates: start: 20210510, end: 20210524
  2. CARBIDOPA\LEVODOPA [Concomitant]
     Active Substance: CARBIDOPA\LEVODOPA
     Indication: Parkinson^s disease
     Dosage: 20 MG, TID
     Route: 065
     Dates: start: 202009
  3. PSYLLIUM                           /01328801/ [Concomitant]
     Indication: Bowel movement irregularity
     Dosage: 1 TBSP,  DAILY
     Route: 065
     Dates: start: 202008
  4. PROBIOTICS NOS [Concomitant]
     Active Substance: PROBIOTICS NOS
     Indication: Bowel movement irregularity
     Dosage: UNKNOWN, UNKNOWN
     Route: 065
     Dates: start: 202009

REACTIONS (3)
  - Drug ineffective [Unknown]
  - Overdose [Recovered/Resolved]
  - Incorrect product administration duration [Recovered/Resolved]

NARRATIVE: CASE EVENT DATE: 20210510
